FAERS Safety Report 24650139 (Version 1)
Quarter: 2024Q4

REPORT INFORMATION
  Report Type: Spontaneous
  Country: ES (occurrence: ES)
  Receive Date: 20241122
  Receipt Date: 20241122
  Transmission Date: 20250115
  Serious: Yes (Hospitalization)
  Sender: ROCHE
  Company Number: None

PATIENT
  Age: 48 Year
  Sex: Female

DRUGS (1)
  1. XOLAIR [Suspect]
     Active Substance: OMALIZUMAB
     Indication: Asthma
     Dosage: UNK
     Route: 050
     Dates: start: 200912, end: 20100413

REACTIONS (3)
  - Purpura [Unknown]
  - Arthralgia [Unknown]
  - Dermatitis [Unknown]

NARRATIVE: CASE EVENT DATE: 20100101
